FAERS Safety Report 13108164 (Version 1)
Quarter: 2017Q1

REPORT INFORMATION
  Report Type: Report from Study
  Country: US (occurrence: US)
  Receive Date: 20170112
  Receipt Date: 20170112
  Transmission Date: 20170428
  Serious: Yes (Other)
  Sender: FDA-Public Use
  Company Number: US-BAYER-2016-227182

PATIENT
  Age: 49 Year
  Sex: Female

DRUGS (3)
  1. ADEMPAS [Suspect]
     Active Substance: RIOCIGUAT
     Indication: PULMONARY ARTERIAL HYPERTENSION
     Dosage: 1 MG, TID
     Route: 048
     Dates: start: 20161109, end: 20161123
  2. HYDROCODONE [Concomitant]
     Active Substance: HYDROCODONE
     Indication: PAIN
     Dosage: 10 MG, BID
  3. ADEMPAS [Suspect]
     Active Substance: RIOCIGUAT
     Indication: PULMONARY ARTERIAL HYPERTENSION
     Dosage: 2.5 MG, TID
     Route: 048
     Dates: start: 20161123

REACTIONS (9)
  - Fatigue [None]
  - Sputum discoloured [None]
  - Dizziness [None]
  - Arthralgia [None]
  - Drug intolerance [None]
  - Productive cough [None]
  - Headache [None]
  - Chest discomfort [None]
  - Palpitations [None]

NARRATIVE: CASE EVENT DATE: 20161123
